FAERS Safety Report 13842938 (Version 4)
Quarter: 2017Q3

REPORT INFORMATION
  Report Type: Report from Study
  Country: JP (occurrence: JP)
  Receive Date: 20170808
  Receipt Date: 20170926
  Transmission Date: 20171127
  Serious: Yes (Other)
  Sender: FDA-Public Use
  Company Number: JP-ASTELLAS-2015JP018108

PATIENT
  Age: 81 Year
  Sex: Male
  Weight: 52 kg

DRUGS (28)
  1. PRIMPERAN [Concomitant]
     Active Substance: METOCLOPRAMIDE HYDROCHLORIDE
     Indication: GASTROENTERITIS
     Route: 065
     Dates: start: 20150703, end: 20150703
  2. NAUZELIN [Concomitant]
     Active Substance: DOMPERIDONE
     Indication: GASTROENTERITIS
     Route: 048
     Dates: start: 20150703, end: 20150710
  3. UBRETID [Concomitant]
     Active Substance: DISTIGMINE BROMIDE
     Indication: BENIGN PROSTATIC HYPERPLASIA
     Route: 048
     Dates: start: 20170412
  4. MAGMITT [Concomitant]
     Active Substance: MAGNESIUM OXIDE
     Indication: CONSTIPATION
     Route: 048
     Dates: start: 20160122, end: 20160707
  5. LACTEC                             /00490001/ [Concomitant]
     Indication: GASTROENTERITIS
     Route: 065
     Dates: start: 20150703, end: 20150703
  6. GASTROZEPIN [Concomitant]
     Active Substance: PIRENZEPINE HYDROCHLORIDE
     Indication: CHRONIC GASTRITIS
     Route: 048
     Dates: start: 20170125, end: 20170221
  7. GASTROZEPIN [Concomitant]
     Active Substance: PIRENZEPINE HYDROCHLORIDE
     Indication: GASTROOESOPHAGEAL REFLUX DISEASE
  8. URSO [Concomitant]
     Active Substance: URSODIOL
     Indication: HEPATIC STEATOSIS
     Route: 048
     Dates: end: 20170208
  9. TAGAMET [Concomitant]
     Active Substance: CIMETIDINE
     Indication: GASTROENTERITIS
     Route: 048
     Dates: start: 20150703, end: 20150710
  10. AMITIZA [Concomitant]
     Active Substance: LUBIPROSTONE
     Indication: CONSTIPATION
     Dosage: 24 UG, TWICE DAILY
     Route: 048
     Dates: start: 20160707, end: 20170502
  11. FLAVITAN [Concomitant]
     Active Substance: FLAVIN ADENINE DINUCLEOTIDE
     Indication: GASTROENTERITIS
     Route: 065
     Dates: start: 20150703, end: 20150703
  12. CEREKINON [Concomitant]
     Active Substance: TRIMEBUTINE
     Indication: CHRONIC GASTRITIS
     Route: 048
     Dates: start: 20170125
  13. BESACOLIN [Concomitant]
     Active Substance: BETHANECHOL CHLORIDE
     Indication: BENIGN PROSTATIC HYPERPLASIA
     Dosage: 0.3 G, TWICE DAILY
     Route: 048
     Dates: start: 20170412
  14. METFORMIN HYDROCHLORIDE. [Concomitant]
     Active Substance: METFORMIN HYDROCHLORIDE
     Indication: TYPE 2 DIABETES MELLITUS
     Route: 048
  15. BLOPRESS [Concomitant]
     Active Substance: CANDESARTAN CILEXETIL
     Indication: HYPERTENSION
     Route: 048
     Dates: end: 20170208
  16. AVOLVE [Concomitant]
     Active Substance: DUTASTERIDE
     Indication: BENIGN PROSTATIC HYPERPLASIA
     Dosage: 0.5 MG, ONCE DAILY
     Route: 048
     Dates: start: 20170412
  17. CRESTOR [Concomitant]
     Active Substance: ROSUVASTATIN CALCIUM
     Indication: DYSLIPIDAEMIA
     Route: 048
  18. URIEF [Concomitant]
     Active Substance: SILODOSIN
     Indication: BENIGN PROSTATIC HYPERPLASIA
     Route: 048
  19. YAKUBAN [Concomitant]
     Active Substance: FLURBIPROFEN
     Indication: PERIARTHRITIS
     Dosage: 2 SHEETS, TWICE DAILY
     Route: 061
  20. CEREKINON [Concomitant]
     Active Substance: TRIMEBUTINE
     Indication: GASTROOESOPHAGEAL REFLUX DISEASE
  21. MACTASE [Concomitant]
     Indication: GASTROOESOPHAGEAL REFLUX DISEASE
  22. VESICARE [Suspect]
     Active Substance: SOLIFENACIN SUCCINATE
     Indication: HYPERTONIC BLADDER
     Route: 048
     Dates: end: 20170208
  23. CONIEL [Concomitant]
     Active Substance: BENIDIPINE HYDROCHLORIDE
     Indication: HYPERTENSION
     Route: 048
  24. PANTOSIN [Concomitant]
     Active Substance: PANTETHINE
     Indication: GASTROENTERITIS
     Route: 048
     Dates: start: 20150703, end: 20150710
  25. MACTASE [Concomitant]
     Indication: CHRONIC GASTRITIS
     Route: 048
     Dates: start: 20170125
  26. TAKEPRON [Concomitant]
     Active Substance: LANSOPRAZOLE
     Indication: GASTROOESOPHAGEAL REFLUX DISEASE
     Route: 048
     Dates: start: 20170125
  27. IPRAGLIFLOZIN [Suspect]
     Active Substance: IPRAGLIFLOZIN
     Indication: TYPE 2 DIABETES MELLITUS
     Route: 048
     Dates: start: 20150502
  28. LAC-B [Concomitant]
     Active Substance: BIFIDOBACTERIUM SPP.
     Indication: GASTROENTERITIS
     Route: 048
     Dates: start: 20150703, end: 20150710

REACTIONS (6)
  - Chronic gastritis [Recovering/Resolving]
  - Urinary retention [Recovered/Resolved]
  - Blood bilirubin increased [Recovered/Resolved]
  - Gastroenteritis [Recovering/Resolving]
  - Constipation [Recovering/Resolving]
  - Gastrooesophageal reflux disease [Recovering/Resolving]

NARRATIVE: CASE EVENT DATE: 20150703
